FAERS Safety Report 22131457 (Version 1)
Quarter: 2023Q1

REPORT INFORMATION
  Report Type: Spontaneous
  Country: US (occurrence: US)
  Receive Date: 20230323
  Receipt Date: 20230323
  Transmission Date: 20230418
  Serious: No
  Sender: FDA-Public Use
  Company Number: US-ALLERGAN-2231806US

PATIENT
  Age: 75 Year
  Sex: Female
  Weight: 68.038 kg

DRUGS (3)
  1. LASTACAFT [Suspect]
     Active Substance: ALCAFTADINE
     Indication: Hypersensitivity
     Dosage: 2 GTT, QD
     Route: 047
     Dates: start: 20220926, end: 20220926
  2. LASTACAFT [Suspect]
     Active Substance: ALCAFTADINE
     Dosage: 2 GTT, QD
     Route: 047
     Dates: start: 20220912, end: 20220915
  3. LEVOTHYROXINE [Concomitant]
     Active Substance: LEVOTHYROXINE
     Indication: Thyroid disorder
     Dosage: UNK

REACTIONS (6)
  - Foreign body sensation in eyes [Unknown]
  - Swelling of eyelid [Unknown]
  - Ocular hyperaemia [Recovering/Resolving]
  - Eye swelling [Unknown]
  - Eye irritation [Unknown]
  - Lacrimation increased [Unknown]

NARRATIVE: CASE EVENT DATE: 20220912
